FAERS Safety Report 4963732-2 (Version None)
Quarter: 2006Q1

REPORT INFORMATION
  Report Type: 
  Country: None (occurrence: None)
  Receive Date: 20060330
  Receipt Date: 20060324
  Transmission Date: 20060701
  Serious: Yes (Death, Hospitalization)
  Sender: FDA-Public Use
  Company Number: 028-C5013-06010148

PATIENT
  Age: 67 Year
  Sex: Female
  Weight: 69 kg

DRUGS (5)
  1. REVLIMID [Suspect]
     Indication: MULTIPLE MYELOMA
     Dosage: 25 MG, QD X21D, 28 DAY CYCLE, ORAL
     Route: 048
     Dates: start: 20051101, end: 20060101
  2. DEXAMETHASONE [Suspect]
     Indication: MULTIPLE MYELOMA
     Dosage: ORAL
     Route: 048
     Dates: start: 20051101, end: 20060101
  3. CITALOPRAM [Concomitant]
  4. ASPIRIN [Concomitant]
  5. HYDROMORPHONE HCL [Concomitant]

REACTIONS (5)
  - BUNDLE BRANCH BLOCK [None]
  - CARDIAC ARREST [None]
  - FEBRILE NEUTROPENIA [None]
  - PNEUMONIA [None]
  - SEPTIC SHOCK [None]
